FAERS Safety Report 23416608 (Version 1)
Quarter: 2024Q1

REPORT INFORMATION
  Report Type: Spontaneous
  Country: CA (occurrence: CA)
  Receive Date: 20240118
  Receipt Date: 20240118
  Transmission Date: 20240410
  Serious: Yes (Hospitalization, Other)
  Sender: FDA-Public Use
  Company Number: CA-FreseniusKabi-FK202400949

PATIENT
  Age: 63 Year
  Sex: Male

DRUGS (9)
  1. ETOPOSIDE [Suspect]
     Active Substance: ETOPOSIDE
     Indication: Lung neoplasm malignant
     Dosage: FREQUENCY- CYCLICAL?FORM OF ADMIN.- LIQUID INTRAVENOUS
     Route: 042
  2. CISPLATIN [Concomitant]
     Active Substance: CISPLATIN
     Indication: Product used for unknown indication
     Dosage: FORM OF ADMIN.- SOLUTION INTRAVENOUS?ROUTE OF ADMIN.- INTRAVENOUS (NOT OTHERWISE SPECIFIED) ( INT )
  3. DEXAMETHASONE [Concomitant]
     Active Substance: DEXAMETHASONE
     Indication: Product used for unknown indication
     Dosage: FORM OF ADMIN.- NOT SPECIFIED
  4. FOSAPREPITANT [Concomitant]
     Active Substance: FOSAPREPITANT
     Indication: Product used for unknown indication
     Dosage: FORM OF ADMIN.- POWDER FOR SOLUTION INTRAVENOUS
  5. FUROSEMIDE [Concomitant]
     Active Substance: FUROSEMIDE
     Indication: Product used for unknown indication
     Dosage: FORM OF ADMIN.- NOT SPECIFIED
  6. MAGNESIUM SULFATE [Concomitant]
     Active Substance: MAGNESIUM SULFATE\MAGNESIUM SULFATE HEPTAHYDRATE
     Indication: Product used for unknown indication
     Dosage: FORM OF ADMIN.- NOT SPECIFIED
  7. MANNITOL [Concomitant]
     Active Substance: MANNITOL
     Indication: Product used for unknown indication
     Dosage: FORM OF ADMIN.- NOT SPECIFIED
  8. ONDANSETRON [Concomitant]
     Active Substance: ONDANSETRON
     Indication: Product used for unknown indication
     Dosage: FORM OF ADMIN.- NOT SPECIFIED
  9. UNSPECIFIED INGREDIENT [Concomitant]
     Active Substance: UNSPECIFIED INGREDIENT
     Indication: Product used for unknown indication
     Dosage: FORM OF ADMIN.- CAPSULE

REACTIONS (6)
  - Chest discomfort [Recovering/Resolving]
  - Dizziness [Recovering/Resolving]
  - Dysgeusia [Recovering/Resolving]
  - Dyspnoea [Recovering/Resolving]
  - Erythema [Recovering/Resolving]
  - Troponin increased [Recovering/Resolving]
